FAERS Safety Report 4492786-5 (Version None)
Quarter: 2004Q4

REPORT INFORMATION
  Report Type: 
  Country: None (occurrence: None)
  Receive Date: 20041102
  Receipt Date: 20041018
  Transmission Date: 20050328
  Serious: Yes (Life-Threatening, Hospitalization)
  Sender: FDA-Public Use
  Company Number: B0347815A

PATIENT
  Age: 84 Year
  Sex: Male

DRUGS (9)
  1. VALTREX [Suspect]
     Indication: HERPES ZOSTER
     Dosage: 1000 MG/THREE TIMES PER DAY/ORAL
     Route: 048
     Dates: start: 20040813, end: 20040823
  2. ALOSENN [Concomitant]
  3. MORPHINE SULFATE [Concomitant]
  4. GLYBURIDE [Concomitant]
  5. PITAVASTATIN CALCIUM [Concomitant]
  6. AMLODIPINE [Concomitant]
  7. CANDESARTAN CILEXETIL [Concomitant]
  8. AZULENE [Concomitant]
  9. ADJUST A [Concomitant]

REACTIONS (1)
  - RENAL FAILURE ACUTE [None]
